FAERS Safety Report 4724945-8 (Version None)
Quarter: 2005Q3

REPORT INFORMATION
  Report Type: 
  Country: None (occurrence: None)
  Receive Date: 20050722
  Receipt Date: 20050722
  Transmission Date: 20060218
  Serious: Yes (Hospitalization)
  Sender: FDA-Public Use
  Company Number: None

PATIENT
  Age: 51 Year
  Sex: Male

DRUGS (1)
  1. IBUPROFEN [Suspect]
     Indication: BACK PAIN
     Dosage: 800 MG TWICE DAILY

REACTIONS (5)
  - ABDOMINAL PAIN [None]
  - DUODENAL ULCER [None]
  - FAECES DISCOLOURED [None]
  - HAEMATEMESIS [None]
  - MELAENA [None]
